FAERS Safety Report 11327425 (Version 1)
Quarter: 2015Q3

REPORT INFORMATION
  Report Type: Spontaneous
  Country: DE (occurrence: DE)
  Receive Date: 20150731
  Receipt Date: 20150731
  Transmission Date: 20151125
  Serious: Yes (Other)
  Sender: FDA-Public Use
  Company Number: DE-BAYER-2015-384234

PATIENT
  Age: 43 Year
  Sex: Female
  Weight: 53.97 kg

DRUGS (2)
  1. MIRENA [Suspect]
     Active Substance: LEVONORGESTREL
     Indication: CONTRACEPTION
     Dosage: 20 MCG/24HR, CONT
     Route: 015
     Dates: start: 201408
  2. MIRENA [Suspect]
     Active Substance: LEVONORGESTREL
     Indication: CONTRACEPTION
     Dosage: 20 MCG/24HR, CONT
     Route: 015
     Dates: start: 200908, end: 201408

REACTIONS (5)
  - Pain [None]
  - Diarrhoea [None]
  - Headache [None]
  - Deep vein thrombosis [None]
  - Pre-existing condition improved [None]

NARRATIVE: CASE EVENT DATE: 2015
